FAERS Safety Report 14103761 (Version 1)
Quarter: 2017Q4

REPORT INFORMATION
  Report Type: Spontaneous
  Country: FR (occurrence: FR)
  Receive Date: 20171018
  Receipt Date: 20171018
  Transmission Date: 20180321
  Serious: Yes (Hospitalization)
  Sender: FDA-Public Use
  Company Number: FR-ASTRAZENECA-2017SF05628

PATIENT
  Age: 925 Month
  Sex: Female

DRUGS (11)
  1. ATENOLOL. [Concomitant]
     Active Substance: ATENOLOL
  2. INEXIUM [Concomitant]
     Active Substance: ESOMEPRAZOLE
  3. PLAVIX [Concomitant]
     Active Substance: CLOPIDOGREL BISULFATE
  4. GLYCERYL TRINITRATE [Concomitant]
     Active Substance: NITROGLYCERIN
  5. PRITOR [Concomitant]
     Active Substance: TELMISARTAN
  6. NATISPRAY [Concomitant]
     Active Substance: NITROGLYCERIN
  7. CRESTOR [Suspect]
     Active Substance: ROSUVASTATIN CALCIUM
     Indication: DYSLIPIDAEMIA
     Dosage: 5.0MG UNKNOWN
     Route: 048
     Dates: start: 201605, end: 201703
  8. ESIDREX [Concomitant]
     Active Substance: HYDROCHLOROTHIAZIDE
  9. LASILIX [Concomitant]
     Active Substance: FUROSEMIDE
  10. CODOLIPRANE [Concomitant]
     Active Substance: ACETAMINOPHEN\CODEINE PHOSPHATE
  11. ESOMEPRAZOLE [Concomitant]
     Active Substance: ESOMEPRAZOLE

REACTIONS (1)
  - Hypersensitivity vasculitis [Recovered/Resolved]

NARRATIVE: CASE EVENT DATE: 201606
